FAERS Safety Report 5805818-6 (Version None)
Quarter: 2008Q3

REPORT INFORMATION
  Report Type: 
  Country: None (occurrence: None)
  Receive Date: 20080708
  Receipt Date: 20080708
  Transmission Date: 20090109
  Serious: Yes (Other)
  Sender: FDA-Public Use
  Company Number: None

PATIENT
  Sex: Male
  Weight: 85.2762 kg

DRUGS (7)
  1. TOPAMAX [Suspect]
     Indication: ESSENTIAL TREMOR
     Dosage: 25 MG 3X PER DAY PO
     Route: 048
     Dates: start: 20080424, end: 20080630
  2. EFFEXOR [Concomitant]
  3. GABAPENTIN [Concomitant]
  4. ADVAIR DISKUS 100/50 [Concomitant]
  5. SIMVASTATIN [Concomitant]
  6. SINGULAIR [Concomitant]
  7. OMEPRAZOLE [Concomitant]

REACTIONS (2)
  - HEADACHE [None]
  - MEMORY IMPAIRMENT [None]
